FAERS Safety Report 8582944-2 (Version None)
Quarter: 2012Q3

REPORT INFORMATION
  Report Type: 
  Country: None (occurrence: None)
  Receive Date: 20120809
  Receipt Date: 20120720
  Transmission Date: 20120928
  Serious: Yes (Hospitalization, Disabling)
  Sender: FDA-Public Use
  Company Number: FR-JNJFOC-20120712420

PATIENT
  Sex: Female

DRUGS (4)
  1. ASPIRIN [Suspect]
     Indication: PRODUCT USED FOR UNKNOWN INDICATION
  2. XARELTO [Suspect]
     Indication: THROMBOSIS PROPHYLAXIS
     Route: 048
     Dates: start: 20120514, end: 20120530
  3. LEVOTHYROXINE SODIUM [Concomitant]
     Dosage: DOSE: 100 ??G
  4. XARELTO [Suspect]
     Indication: HIP ARTHROPLASTY
     Route: 048
     Dates: start: 20120514, end: 20120530

REACTIONS (4)
  - OEDEMA PERIPHERAL [None]
  - HAEMOGLOBIN DECREASED [None]
  - PAIN IN EXTREMITY [None]
  - HAEMORRHAGE [None]
